FAERS Safety Report 24831304 (Version 2)
Quarter: 2025Q1

REPORT INFORMATION
  Report Type: Spontaneous
  Country: US (occurrence: US)
  Receive Date: 20250110
  Receipt Date: 20250207
  Transmission Date: 20250409
  Serious: No
  Sender: MYLAN
  Company Number: US-MYLANLABS-2025M1000552

PATIENT

DRUGS (1)
  1. EPINEPHRINE [Suspect]
     Active Substance: EPINEPHRINE
     Indication: Drug hypersensitivity
     Route: 058
     Dates: start: 20241230

REACTIONS (4)
  - Device failure [Unknown]
  - Needle issue [Unknown]
  - Medical device entrapment [Unknown]
  - Product quality issue [Unknown]

NARRATIVE: CASE EVENT DATE: 20241230
